FAERS Safety Report 8421616-1 (Version None)
Quarter: 2012Q2

REPORT INFORMATION
  Report Type: 
  Country: None (occurrence: None)
  Receive Date: 20120608
  Receipt Date: 20120605
  Transmission Date: 20120825
  Serious: No
  Sender: FDA-Public Use
  Company Number: US-PFIZER INC-2012097799

PATIENT
  Sex: Female
  Weight: 79 kg

DRUGS (13)
  1. NEURONTIN [Suspect]
     Indication: PAIN
     Dosage: 300 MG, 3X/DAY
     Route: 048
     Dates: start: 20120417
  2. LYSINE [Concomitant]
     Indication: HERPES ZOSTER
     Dosage: UNK, 3X/DAY
  3. FISH OIL [Concomitant]
     Dosage: 1000 MG, 2X/DAY
  4. LANTUS [Concomitant]
     Indication: DIABETES MELLITUS
     Dosage: ONCE AT BED TIME
  5. PREVACID [Concomitant]
     Dosage: 30 MG, 1X/DAY
  6. MUCINEX [Concomitant]
     Indication: UPPER RESPIRATORY FUNGAL INFECTION
     Dosage: UNK
  7. VITAMIN D [Concomitant]
     Dosage: 1000 MG, UNK
  8. STARLIX [Concomitant]
     Indication: DIABETES MELLITUS
     Dosage: UNK, 3X/DAY
  9. JANUVIA [Concomitant]
     Indication: DIABETES MELLITUS
     Dosage: UNK, 1X/DAY
  10. ASCORBIC ACID [Concomitant]
     Dosage: 1000 MG, 4X/DAY
  11. VITAMIN B COMPLEX CAP [Concomitant]
     Dosage: UNK, 1X/DAY
  12. MULTI-VITAMINS [Concomitant]
     Dosage: UNK, 1X/DAY
  13. ASPIRIN [Concomitant]
     Dosage: ONCE A DAY

REACTIONS (4)
  - FEELING ABNORMAL [None]
  - DIZZINESS [None]
  - COORDINATION ABNORMAL [None]
  - BALANCE DISORDER [None]
